FAERS Safety Report 11003622 (Version 1)
Quarter: 2015Q2

REPORT INFORMATION
  Report Type: Spontaneous
  Country: US (occurrence: None)
  Receive Date: 20150408
  Receipt Date: 20150408
  Transmission Date: 20150821
  Serious: No
  Sender: FDA-Public Use
  Company Number: None

PATIENT
  Age: 77 Year
  Sex: Male

DRUGS (1)
  1. XTANDI [Suspect]
     Active Substance: ENZALUTAMIDE
     Indication: PROSTATE CANCER
     Dosage: 4 CAPSULES
     Route: 048
     Dates: start: 20150320

REACTIONS (3)
  - Wrong technique in drug usage process [None]
  - Oral discomfort [None]
  - Dysphagia [None]

NARRATIVE: CASE EVENT DATE: 20150317
